FAERS Safety Report 11316746 (Version 1)
Quarter: 2015Q3

REPORT INFORMATION
  Report Type: Spontaneous
  Country: US (occurrence: None)
  Receive Date: 20150727
  Receipt Date: 20150727
  Transmission Date: 20151125
  Serious: No
  Sender: FDA-Public Use
  Company Number: None

PATIENT
  Age: 44 Year
  Sex: Male
  Weight: 114.7 kg

DRUGS (1)
  1. ZOLEDRONIC [Suspect]
     Active Substance: ZOLEDRONIC ACID
     Dates: start: 20141119, end: 20141119

REACTIONS (5)
  - Gait disturbance [None]
  - Musculoskeletal pain [None]
  - Arthralgia [None]
  - Myalgia [None]
  - Back pain [None]

NARRATIVE: CASE EVENT DATE: 20141119
